FAERS Safety Report 9107057 (Version 2)
Quarter: 2013Q4

REPORT INFORMATION
  Report Type: Spontaneous
  Country: US (occurrence: US)
  Receive Date: 20130221
  Receipt Date: 20131204
  Transmission Date: 20140711
  Serious: Yes (Hospitalization)
  Sender: FDA-Public Use
  Company Number: US-BAYER-2013-020384

PATIENT
  Age: 20 Year
  Sex: Female

DRUGS (12)
  1. YASMIN [Suspect]
     Indication: POLYCYSTIC OVARIES
  2. VITAMIN D3 [Concomitant]
     Dosage: 1000 UNITS
  3. CELEXA [Concomitant]
     Dosage: 40 MG, UNK
  4. LANTUS [Concomitant]
     Dosage: 100 UNIT/ML INJECTION
  5. HUMALOG [Concomitant]
     Dosage: 100 UNIT/ML CARTRIDGE
  6. ESKALITH-CR [Concomitant]
     Dosage: 150 MG, UNK
  7. CLARITIN [Concomitant]
     Dosage: 100 MG, UNK
  8. MULTIVITAMIN [Concomitant]
  9. COLECALCIFEROL [Concomitant]
  10. CITALOPRAM [Concomitant]
  11. LITHIUM [Concomitant]
  12. LORATADINE [Concomitant]

REACTIONS (2)
  - Pulmonary embolism [Recovering/Resolving]
  - Deep vein thrombosis [None]
